FAERS Safety Report 8529903-3 (Version None)
Quarter: 2012Q3

REPORT INFORMATION
  Report Type: 
  Country: None (occurrence: None)
  Receive Date: 20120723
  Receipt Date: 20120711
  Transmission Date: 20120928
  Serious: Yes (Other)
  Sender: FDA-Public Use
  Company Number: JP-JNJFOC-20120708812

PATIENT
  Age: 17 Year
  Sex: Female

DRUGS (8)
  1. FLUVOXAMINE MALEATE [Concomitant]
     Indication: OBSESSIVE-COMPULSIVE DISORDER
     Route: 048
  2. FLUVOXAMINE MALEATE [Concomitant]
     Dosage: PULSE THERAPY
     Route: 048
  3. CLOMIPRAMINE HCL [Interacting]
     Indication: OBSESSIVE-COMPULSIVE DISORDER
     Dosage: PULSE THERAPY
     Route: 065
  4. FLUVOXAMINE MALEATE [Concomitant]
     Route: 048
  5. CLOMIPRAMINE HCL [Interacting]
     Route: 065
  6. OLANZAPINE [Concomitant]
     Indication: OBSESSIVE-COMPULSIVE DISORDER
     Dosage: PULSE THERAPY
     Route: 048
  7. ITRACONAZOLE [Suspect]
     Indication: ONYCHOMYCOSIS
     Dosage: PULSE THERAPY
     Route: 048
  8. FLUVOXAMINE MALEATE [Concomitant]
     Route: 048

REACTIONS (5)
  - PALPITATIONS [None]
  - HYPERHIDROSIS [None]
  - DYSPNOEA [None]
  - DIZZINESS POSTURAL [None]
  - DRUG INTERACTION [None]
